FAERS Safety Report 8552739-4 (Version None)
Quarter: 2012Q3

REPORT INFORMATION
  Report Type: 
  Country: None (occurrence: None)
  Receive Date: 20120731
  Receipt Date: 20120725
  Transmission Date: 20120928
  Serious: Yes (Death, Hospitalization)
  Sender: FDA-Public Use
  Company Number: PHHY2012JP061096

PATIENT
  Sex: Female
  Weight: 73 kg

DRUGS (7)
  1. CELESTAMINE TAB [Concomitant]
     Indication: ECZEMA
     Dosage: 1 DF, UNK
     Route: 048
     Dates: start: 20120615, end: 20120619
  2. TEGRETOL [Suspect]
     Dosage: 2 DF, DAILY
     Route: 048
     Dates: start: 20120529, end: 20120618
  3. PREDNISOLONE [Concomitant]
     Indication: ECZEMA
     Dosage: 10 MG, UNK
     Route: 048
     Dates: start: 20120615, end: 20120619
  4. TEGRETOL [Suspect]
     Indication: TRIGEMINAL NEURALGIA
     Dosage: 2 DF, DAILY
     Route: 048
     Dates: start: 20090313
  5. OLOPATADINE HCL [Concomitant]
     Indication: ECZEMA
     Dosage: 10 MG, UNK
     Route: 048
     Dates: start: 20120615, end: 20120619
  6. TEGRETOL [Suspect]
     Dosage: 2 DF, DAILY
     Route: 048
     Dates: start: 20120509
  7. TELMISARTAN [Concomitant]
     Indication: HYPERTENSION
     Dosage: 2 DF, UNK
     Route: 048
     Dates: end: 20120619

REACTIONS (27)
  - PYREXIA [None]
  - HEPATOMEGALY [None]
  - PROTHROMBIN TIME SHORTENED [None]
  - ECZEMA [None]
  - DECREASED APPETITE [None]
  - HAEMOGLOBIN DECREASED [None]
  - HEPATITIS FULMINANT [None]
  - HEPATIC FUNCTION ABNORMAL [None]
  - RASH GENERALISED [None]
  - BLOOD PRESSURE DECREASED [None]
  - HEPATITIS [None]
  - MALAISE [None]
  - PLATELET COUNT DECREASED [None]
  - HEPATIC ENCEPHALOPATHY [None]
  - PRURITUS [None]
  - PULSELESS ELECTRICAL ACTIVITY [None]
  - VENTRICULAR FIBRILLATION [None]
  - CARDIAC ARREST [None]
  - DRUG RASH WITH EOSINOPHILIA AND SYSTEMIC SYMPTOMS [None]
  - WHITE BLOOD CELL COUNT INCREASED [None]
  - HAEMATOCRIT DECREASED [None]
  - BLOOD BILIRUBIN INCREASED [None]
  - DEPRESSED LEVEL OF CONSCIOUSNESS [None]
  - TRANSAMINASES INCREASED [None]
  - MICTURITION FREQUENCY DECREASED [None]
  - RESPIRATORY DISTRESS [None]
  - HEART RATE INCREASED [None]
